FAERS Safety Report 4643037-X (Version None)
Quarter: 2005Q2

REPORT INFORMATION
  Report Type: 
  Country: None (occurrence: None)
  Receive Date: 20050421
  Receipt Date: 20050408
  Transmission Date: 20051028
  Serious: Yes (Death)
  Sender: FDA-Public Use
  Company Number: 2005055996

PATIENT
  Age: 16 Year
  Sex: Male
  Weight: 107 kg

DRUGS (2)
  1. GENOTROPIN [Suspect]
     Indication: MEDULLOBLASTOMA
     Dosage: 7 MG WEEKLY (7 INJECTIONS/WEEK) - SUBCUTANEOUS
     Route: 058
     Dates: start: 19961010, end: 20041104
  2. PANTOPRAZOLE SODIUM [Concomitant]

REACTIONS (3)
  - COR PULMONALE [None]
  - PNEUMONIA VIRAL [None]
  - SUDDEN DEATH [None]
